FAERS Safety Report 21399196 (Version 1)
Quarter: 2022Q4

REPORT INFORMATION
  Report Type: Spontaneous
  Country: NO (occurrence: NO)
  Receive Date: 20221001
  Receipt Date: 20221001
  Transmission Date: 20230113
  Serious: Yes (Hospitalization, Other)
  Sender: FDA-Public Use
  Company Number: None

PATIENT
  Age: 38 Year
  Sex: Female

DRUGS (2)
  1. COSENTYX [Suspect]
     Active Substance: SECUKINUMAB
     Indication: Axial spondyloarthritis
     Dosage: FIRST ROUND WITH COSENTYX
     Route: 058
     Dates: start: 202110
  2. COSENTYX [Suspect]
     Active Substance: SECUKINUMAB
     Dosage: 1 TIME PER WEEK FOR 5 WEEKS, THEN 1 TIME PER MONTH
     Route: 058
     Dates: start: 20220801, end: 20220922

REACTIONS (7)
  - Clostridium difficile infection [Recovered/Resolved]
  - Clostridium difficile infection [Recovered/Resolved with Sequelae]
  - Sepsis [Unknown]
  - Pyrexia [Unknown]
  - Pyrexia [Unknown]
  - C-reactive protein increased [Unknown]
  - C-reactive protein increased [Unknown]

NARRATIVE: CASE EVENT DATE: 20210101
